FAERS Safety Report 10409424 (Version 1)
Quarter: 2014Q3

REPORT INFORMATION
  Report Type: Spontaneous
  Country: GB (occurrence: None)
  Receive Date: 20140822
  Receipt Date: 20140822
  Transmission Date: 20150326
  Serious: Yes (Congenital Anomaly, Other)
  Sender: FDA-Public Use
  Company Number: GB-ZYDUS-004291

PATIENT
  Sex: Male
  Weight: 2.41 kg

DRUGS (2)
  1. CARBAMAZEPINE. [Concomitant]
     Active Substance: CARBAMAZEPINE
  2. SODIUM VALPROATE [Suspect]
     Active Substance: VALPROATE SODIUM
     Route: 064

REACTIONS (12)
  - Coloboma [None]
  - Atrial septal defect [None]
  - Cleft palate [None]
  - Failure to thrive [None]
  - Brachycephaly [None]
  - Hearing impaired [None]
  - Dacryostenosis congenital [None]
  - Motor developmental delay [None]
  - Foetal anticonvulsant syndrome [None]
  - Visual acuity reduced [None]
  - Hypospadias [None]
  - Hypertelorism of orbit [None]
